FAERS Safety Report 18459079 (Version 2)
Quarter: 2020Q4

REPORT INFORMATION
  Report Type: Report from Study
  Country: US (occurrence: US)
  Receive Date: 20201103
  Receipt Date: 20201105
  Transmission Date: 20210114
  Serious: Yes (Death)
  Sender: FDA-Public Use
  Company Number: US-PFIZER INC-2020417885

PATIENT
  Age: 39 Year
  Sex: Male
  Weight: 112 kg

DRUGS (6)
  1. LORLATINIB [Suspect]
     Active Substance: LORLATINIB
     Indication: NON-SMALL CELL LUNG CANCER
     Dosage: 50 MG, QD
     Route: 048
     Dates: start: 20200818, end: 20201001
  2. XANAX [Concomitant]
     Active Substance: ALPRAZOLAM
     Indication: ANXIETY
     Dosage: 0.25-0.5 MG BY MOUTH EVERY 8 HOURS AS NEEDED
     Route: 048
     Dates: start: 20200818
  3. BINIMETINIB [Suspect]
     Active Substance: BINIMETINIB
     Indication: NON-SMALL CELL LUNG CANCER
     Dosage: 15 MG, BID
     Route: 048
     Dates: start: 20200818, end: 20201001
  4. TESSALON [Concomitant]
     Active Substance: BENZONATATE
     Indication: COUGH
     Dosage: 100 MG, BY MOUTH EVERY 8 HOURS AS NEEDED
     Route: 048
     Dates: start: 20200818
  5. ALBUTEROL [SALBUTAMOL] [Concomitant]
     Active Substance: ALBUTEROL
     Indication: WHEEZING
     Dosage: (2.5 MG/3ML) 0.083% INHAL NEBU SOLN INHALE 3 ML INTO THE LUNGS 4 TIMES DAILY
     Route: 055
     Dates: start: 20200818
  6. DOCETAXEL. [Concomitant]
     Active Substance: DOCETAXEL
     Dosage: UNK
     Dates: start: 20201012

REACTIONS (1)
  - Dyspnoea [Fatal]

NARRATIVE: CASE EVENT DATE: 20201025
